FAERS Safety Report 6219050-8 (Version None)
Quarter: 2009Q2

REPORT INFORMATION
  Report Type: 
  Country: None (occurrence: None)
  Receive Date: 20090608
  Receipt Date: 20090529
  Transmission Date: 20091009
  Serious: Yes (Other)
  Sender: FDA-Public Use
  Company Number: GR-MERCK-0905GRC00006

PATIENT
  Age: 66 Year
  Sex: Male
  Weight: 73 kg

DRUGS (7)
  1. JANUVIA [Suspect]
     Indication: TYPE 2 DIABETES MELLITUS
     Route: 048
     Dates: start: 20080920, end: 20081003
  2. JANUVIA [Suspect]
     Route: 048
     Dates: start: 20081009, end: 20081024
  3. GLIMEPIRIDE [Concomitant]
     Indication: TYPE 2 DIABETES MELLITUS
     Route: 048
  4. CARVEDILOL [Concomitant]
     Indication: CORONARY ARTERY DISEASE
     Route: 048
     Dates: start: 20070101
  5. METFORMIN HYDROCHLORIDE [Concomitant]
     Indication: TYPE 2 DIABETES MELLITUS
     Route: 048
  6. ASPIRIN [Concomitant]
     Indication: CORONARY ARTERY DISEASE
     Route: 048
     Dates: start: 20070101
  7. ATORVASTATIN CALCIUM [Suspect]
     Indication: HYPERCHOLESTEROLAEMIA
     Route: 048
     Dates: start: 20070101

REACTIONS (3)
  - ASTHENIA [None]
  - HEADACHE [None]
  - MYOPATHY [None]
